FAERS Safety Report 7589376-4 (Version None)
Quarter: 2011Q3

REPORT INFORMATION
  Report Type: 
  Country: None (occurrence: None)
  Receive Date: 20110705
  Receipt Date: 20110622
  Transmission Date: 20111222
  Serious: Yes (Other)
  Sender: FDA-Public Use
  Company Number: CH-ELI_LILLY_AND_COMPANY-CH201106006800

PATIENT
  Age: 62 Year
  Sex: Male
  Weight: 67 kg

DRUGS (21)
  1. ZYPREXA [Suspect]
     Indication: HALLUCINATION
     Dosage: 5 MG, QD
     Route: 048
     Dates: start: 20110525, end: 20110525
  2. MARCOUMAR [Concomitant]
     Indication: ATRIAL FIBRILLATION
     Dosage: UNK, PRN
     Route: 048
     Dates: start: 20110501
  3. FOLIC ACID [Concomitant]
     Dosage: UNK
     Route: 048
     Dates: start: 20110527
  4. ZYPREXA [Suspect]
     Dosage: 10 MG, QD
     Route: 048
     Dates: start: 20110526, end: 20110605
  5. ZYPREXA [Suspect]
     Dosage: 15 MG, QD
     Route: 048
     Dates: start: 20110606, end: 20110614
  6. BILOL [Concomitant]
     Dosage: 2.5 MG, QD
     Dates: start: 20110617
  7. DIPIPERON [Concomitant]
     Dosage: 60 MG, QD
     Dates: start: 20110620
  8. ZYPREXA [Suspect]
     Dosage: 5 MG, QD
     Route: 048
     Dates: start: 20110616, end: 20110618
  9. LORAZEPAM [Concomitant]
     Dosage: 1 MG, QD
     Route: 048
     Dates: start: 20110606
  10. DIPIPERON [Concomitant]
     Dosage: 40 MG, QD
     Dates: start: 20110616, end: 20110619
  11. HALDOL [Concomitant]
     Dosage: 0.5 MG, UNK
     Dates: start: 20110617, end: 20110620
  12. ZYPREXA [Suspect]
     Dosage: 10 MG, QD
     Route: 048
     Dates: start: 20110615, end: 20110615
  13. MAGNESIUM DIASPORAL [Concomitant]
     Dosage: UNK
     Route: 048
  14. VITARUBIN [Concomitant]
     Dosage: UNK
     Dates: start: 20110527
  15. DIPIPERON [Concomitant]
     Dosage: 30 MG, QD
     Dates: start: 20110615, end: 20110615
  16. ATORVASTATIN CALCIUM [Concomitant]
     Dosage: 40 MG, QD
     Route: 048
     Dates: start: 20110501
  17. PRADIF [Concomitant]
     Dosage: 400 MG, QD
     Route: 048
     Dates: start: 20110501
  18. CALCIMAGON-D 3 [Concomitant]
     Dosage: UNK
     Route: 048
  19. BILOL [Concomitant]
     Indication: HYPERTENSION
     Dosage: 10 MG, QD
     Dates: end: 20110605
  20. BILOL [Concomitant]
     Dosage: 5 MG, QD
     Dates: start: 20110606, end: 20110616
  21. HALDOL [Concomitant]
     Dosage: 2 MG, UNK
     Dates: start: 20110621

REACTIONS (2)
  - LEUKOPENIA [None]
  - OFF LABEL USE [None]
